FAERS Safety Report 22541341 (Version 1)
Quarter: 2023Q2

REPORT INFORMATION
  Report Type: Spontaneous
  Country: US (occurrence: US)
  Receive Date: 20230609
  Receipt Date: 20230609
  Transmission Date: 20230722
  Serious: No
  Sender: FDA-Public Use
  Company Number: US-ABBVIE-5281332

PATIENT
  Age: 48 Year
  Sex: Female

DRUGS (1)
  1. BOTOX [Suspect]
     Active Substance: ONABOTULINUMTOXINA
     Indication: Face lift
     Route: 065
     Dates: start: 20230209

REACTIONS (3)
  - Off label use [Unknown]
  - Eyelid ptosis [Recovering/Resolving]
  - Brow ptosis [Recovering/Resolving]

NARRATIVE: CASE EVENT DATE: 20230209
